FAERS Safety Report 7402450-8 (Version None)
Quarter: 2011Q1

REPORT INFORMATION
  Report Type: 
  Country: None (occurrence: None)
  Receive Date: 20110331
  Receipt Date: 20110325
  Transmission Date: 20110831
  Serious: Yes (Hospitalization)
  Sender: FDA-Public Use
  Company Number: CANAB-11-0251

PATIENT
  Age: 62 Year
  Sex: Female
  Weight: 77 kg

DRUGS (5)
  1. METFORMIN HCL [Concomitant]
  2. PAXAL [Concomitant]
  3. IBUPROFEN [Concomitant]
  4. DILAUDID [Concomitant]
  5. ABRAXANE [Suspect]
     Indication: BREAST CANCER METASTATIC
     Dosage: (195 MG/M2)
     Dates: start: 20110318, end: 20110318

REACTIONS (8)
  - BLOOD BILIRUBIN INCREASED [None]
  - BLOOD ALKALINE PHOSPHATASE INCREASED [None]
  - TOXICITY TO VARIOUS AGENTS [None]
  - THROMBOCYTOPENIA [None]
  - MUCOSAL INFLAMMATION [None]
  - ASPARTATE AMINOTRANSFERASE INCREASED [None]
  - FEBRILE NEUTROPENIA [None]
  - GENITAL ULCERATION [None]
